FAERS Safety Report 8534964-1 (Version None)
Quarter: 2012Q3

REPORT INFORMATION
  Report Type: 
  Country: None (occurrence: None)
  Receive Date: 20120724
  Receipt Date: 20120713
  Transmission Date: 20120928
  Serious: No
  Sender: FDA-Public Use
  Company Number: US-PFIZER INC-2012134124

PATIENT
  Sex: Female
  Weight: 117.9 kg

DRUGS (2)
  1. TIKOSYN [Suspect]
     Indication: ARRHYTHMIA
     Dosage: 0.5 MG, 2X/DAY
     Route: 048
     Dates: start: 20110701
  2. XOPENEX [Concomitant]
     Indication: ASTHMA
     Dosage: UNK, AS NEEDED

REACTIONS (1)
  - NO ADVERSE EVENT [None]
